FAERS Safety Report 9353243 (Version 2)
Quarter: 2013Q3

REPORT INFORMATION
  Report Type: Spontaneous
  Country: US (occurrence: US)
  Receive Date: 20130618
  Receipt Date: 20130719
  Transmission Date: 20140515
  Serious: No
  Sender: FDA-Public Use
  Company Number: US-PFIZER INC-2013180576

PATIENT
  Sex: 0

DRUGS (2)
  1. LYRICA [Suspect]
     Indication: PAIN
     Dosage: 150 MG, 3X/DAY
  2. LYRICA [Suspect]
     Dosage: 300 MG, 3X/DAY

REACTIONS (2)
  - Intentional drug misuse [Unknown]
  - Oedema peripheral [Unknown]
